FAERS Safety Report 5792258-1 (Version None)
Quarter: 2008Q2

REPORT INFORMATION
  Report Type: 
  Country: None (occurrence: None)
  Receive Date: 20080626
  Receipt Date: 20080306
  Transmission Date: 20081010
  Serious: No
  Sender: FDA-Public Use
  Company Number: US-ASTRAZENECA-2008UW04581

PATIENT
  Age: 89 Year
  Sex: Female
  Weight: 59 kg

DRUGS (5)
  1. PULMICORT FLEXHALER [Suspect]
     Indication: ASTHMA
     Dosage: 2 PUFFS BID
     Route: 055
     Dates: start: 20050301
  2. ASTELIN [Concomitant]
  3. RHINOCORT [Concomitant]
     Route: 045
  4. REFRESH [Concomitant]
     Route: 047
  5. VITAMINS [Concomitant]

REACTIONS (2)
  - DRY EYE [None]
  - LACRIMATION INCREASED [None]
